FAERS Safety Report 17034749 (Version 5)
Quarter: 2023Q2

REPORT INFORMATION
  Report Type: Report from Study
  Country: CA (occurrence: None)
  Receive Date: 20191115
  Receipt Date: 20230621
  Transmission Date: 20230721
  Serious: Yes (Other)
  Sender: FDA-Public Use
  Company Number: CA-ORION CORPORATION ORION PHARMA-TREX2019-5458

PATIENT
  Age: 58 Year
  Sex: Female
  Weight: 53.5 kg

DRUGS (50)
  1. METHOTREXATE [Suspect]
     Active Substance: METHOTREXATE
     Indication: Product used for unknown indication
  2. METHOTREXATE [Suspect]
     Active Substance: METHOTREXATE
  3. RITUXAN [Suspect]
     Active Substance: RITUXIMAB
     Indication: Rheumatoid arthritis
     Dates: start: 20110426
  4. RITUXAN [Suspect]
     Active Substance: RITUXIMAB
  5. RITUXAN [Suspect]
     Active Substance: RITUXIMAB
  6. RITUXAN [Suspect]
     Active Substance: RITUXIMAB
     Dates: start: 20120408
  7. RITUXAN [Suspect]
     Active Substance: RITUXIMAB
     Dates: start: 20150513
  8. RITUXAN [Suspect]
     Active Substance: RITUXIMAB
     Dates: start: 20160426
  9. BREO ELLIPTA [Suspect]
     Active Substance: FLUTICASONE FUROATE\VILANTEROL TRIFENATATE
     Indication: Product used for unknown indication
  10. BREO ELLIPTA [Suspect]
     Active Substance: FLUTICASONE FUROATE\VILANTEROL TRIFENATATE
  11. RITUXIMAB [Suspect]
     Active Substance: RITUXIMAB
     Indication: Rheumatoid arthritis
  12. RITUXIMAB [Suspect]
     Active Substance: RITUXIMAB
  13. RITUXIMAB [Suspect]
     Active Substance: RITUXIMAB
  14. ACETAMINOPHEN [Concomitant]
     Active Substance: ACETAMINOPHEN
     Indication: Premedication
  15. ACETAMINOPHEN [Concomitant]
     Active Substance: ACETAMINOPHEN
     Dates: start: 20110426
  16. DIPHENHYDRAMINE HYDROCHLORIDE [Concomitant]
     Active Substance: DIPHENHYDRAMINE HYDROCHLORIDE
     Indication: Premedication
     Dates: start: 20110426
  17. DIPHENHYDRAMINE HYDROCHLORIDE [Concomitant]
     Active Substance: DIPHENHYDRAMINE HYDROCHLORIDE
  18. FOLIC ACID [Concomitant]
     Active Substance: FOLIC ACID
  19. GLIMEPIRIDE\METFORMIN [Concomitant]
     Active Substance: GLIMEPIRIDE\METFORMIN
  20. METFORMIN [Concomitant]
     Active Substance: METFORMIN HYDROCHLORIDE
  21. METHYLPREDNISOLONE [Concomitant]
     Active Substance: METHYLPREDNISOLONE
     Indication: Premedication
     Dates: start: 20110426
  22. VITAMIN B12 [Concomitant]
     Active Substance: CYANOCOBALAMIN
  23. PREDNISONE [Concomitant]
     Active Substance: PREDNISONE
     Indication: Rheumatoid arthritis
  24. PREDNISONE [Concomitant]
     Active Substance: PREDNISONE
  25. PREDNISONE [Concomitant]
     Active Substance: PREDNISONE
  26. PREVACID [Concomitant]
     Active Substance: LANSOPRAZOLE
  27. SYNTHROID [Concomitant]
     Active Substance: LEVOTHYROXINE SODIUM
  28. AZITHROMYCIN [Concomitant]
     Active Substance: AZITHROMYCIN
  29. BUDESONIDE\FORMOTEROL FUMARATE [Concomitant]
     Active Substance: BUDESONIDE\FORMOTEROL FUMARATE
  30. CALCIUM [Concomitant]
     Active Substance: CALCIUM
  31. GLUCONORM [Concomitant]
  32. IBUPROFEN [Concomitant]
     Active Substance: IBUPROFEN
     Indication: Pain management
  33. MELATONIN [Concomitant]
     Active Substance: MELATONIN
  34. PANTOPRAZOLE [Concomitant]
     Active Substance: PANTOPRAZOLE
  35. POTASSIUM [Concomitant]
     Active Substance: POTASSIUM
  36. TAMIFLU [Concomitant]
     Active Substance: OSELTAMIVIR PHOSPHATE
  37. .BETA.-CAROTENE [Concomitant]
     Active Substance: .BETA.-CAROTENE
  38. BIOTIN [Concomitant]
     Active Substance: BIOTIN
  39. BORIC ACID [Concomitant]
     Active Substance: BORIC ACID
  40. CALCIUM PANTOTHENATE [Concomitant]
     Active Substance: CALCIUM PANTOTHENATE
  41. CALCIUM PHOSPHATE [Concomitant]
     Active Substance: CALCIUM PHOSPHATE
  42. CHROMIC CHLORIDE [Concomitant]
     Active Substance: CHROMIC CHLORIDE
  43. CYANOCOBALAMIN [Concomitant]
     Active Substance: CYANOCOBALAMIN
  44. .ALPHA.-TOCOPHEROL ACETATE, D- [Concomitant]
     Active Substance: .ALPHA.-TOCOPHEROL ACETATE, D-
  45. EQUISETUM ARVENSE TOP [Concomitant]
     Active Substance: EQUISETUM ARVENSE TOP
  46. IRON BISGLYCINATE [Concomitant]
  47. MAGNESIUM [Concomitant]
     Active Substance: MAGNESIUM
  48. MOLYBDENUM TRIOXIDE [Concomitant]
  49. NICOTINAMIDE [Concomitant]
     Active Substance: NIACINAMIDE
  50. OMEGA 3 [Concomitant]
     Active Substance: CAPSAICIN

REACTIONS (48)
  - Off label use [Not Recovered/Not Resolved]
  - Intentional product misuse [Not Recovered/Not Resolved]
  - Arthralgia [Not Recovered/Not Resolved]
  - Back pain [Not Recovered/Not Resolved]
  - Blood pressure increased [Recovered/Resolved]
  - Blood urine present [Unknown]
  - C-reactive protein increased [Unknown]
  - Chills [Not Recovered/Not Resolved]
  - Cough [Unknown]
  - Fatigue [Unknown]
  - Heart rate decreased [Unknown]
  - Hypotension [Unknown]
  - Joint swelling [Not Recovered/Not Resolved]
  - Lower respiratory tract congestion [Not Recovered/Not Resolved]
  - Musculoskeletal stiffness [Unknown]
  - Pain in extremity [Not Recovered/Not Resolved]
  - Panic attack [Unknown]
  - Pneumonia [Not Recovered/Not Resolved]
  - Red blood cell sedimentation rate increased [Unknown]
  - Viral upper respiratory tract infection [Unknown]
  - Pyrexia [Not Recovered/Not Resolved]
  - Rheumatoid arthritis [Not Recovered/Not Resolved]
  - Pain [Not Recovered/Not Resolved]
  - Anal incontinence [Not Recovered/Not Resolved]
  - Asthenia [Not Recovered/Not Resolved]
  - Asthma [Not Recovered/Not Resolved]
  - Blood glucose increased [Not Recovered/Not Resolved]
  - Blood pressure systolic increased [Not Recovered/Not Resolved]
  - Blood viscosity abnormal [Not Recovered/Not Resolved]
  - Chest pain [Not Recovered/Not Resolved]
  - Drug hypersensitivity [Not Recovered/Not Resolved]
  - Dry eye [Not Recovered/Not Resolved]
  - Dysuria [Not Recovered/Not Resolved]
  - Ear infection [Not Recovered/Not Resolved]
  - Eyelid ptosis [Not Recovered/Not Resolved]
  - Feeling abnormal [Not Recovered/Not Resolved]
  - Feeling cold [Not Recovered/Not Resolved]
  - Hyperkeratosis [Not Recovered/Not Resolved]
  - Malaise [Not Recovered/Not Resolved]
  - Nasopharyngitis [Not Recovered/Not Resolved]
  - Ocular hyperaemia [Not Recovered/Not Resolved]
  - Paraesthesia [Not Recovered/Not Resolved]
  - Rash [Not Recovered/Not Resolved]
  - Renal cyst [Not Recovered/Not Resolved]
  - Skin laceration [Not Recovered/Not Resolved]
  - Weight decreased [Not Recovered/Not Resolved]
  - Throat irritation [Not Recovered/Not Resolved]
  - Blood pressure systolic abnormal [Not Recovered/Not Resolved]

NARRATIVE: CASE EVENT DATE: 20130101
